FAERS Safety Report 25246607 (Version 1)
Quarter: 2025Q2

REPORT INFORMATION
  Report Type: Spontaneous
  Country: US (occurrence: US)
  Receive Date: 20250428
  Receipt Date: 20250428
  Transmission Date: 20250717
  Serious: No
  Sender: CORIUM
  Company Number: US-MIMS-CORIMC-5854

PATIENT

DRUGS (4)
  1. AZSTARYS [Suspect]
     Active Substance: DEXMETHYLPHENIDATE HYDROCHLORIDE\SERDEXMETHYLPHENIDATE CHLORIDE
     Indication: Attention deficit hyperactivity disorder
     Dosage: 26.1 MG/5.2 MG, QD
     Route: 048
     Dates: start: 202410, end: 202410
  2. AZSTARYS [Suspect]
     Active Substance: DEXMETHYLPHENIDATE HYDROCHLORIDE\SERDEXMETHYLPHENIDATE CHLORIDE
     Dosage: 39.2 MG/7.8 MG, QD
     Route: 048
     Dates: start: 202410, end: 202410
  3. METHYLPHENIDATE [Suspect]
     Active Substance: METHYLPHENIDATE
     Indication: Product used for unknown indication
     Route: 065
  4. GUANFACINE [Concomitant]
     Active Substance: GUANFACINE
     Indication: Product used for unknown indication
     Dosage: 3 MILLIGRAM, QD
     Route: 065

REACTIONS (8)
  - Gastric pH decreased [Unknown]
  - Muscle tightness [Unknown]
  - Abdominal discomfort [Unknown]
  - Aggression [Unknown]
  - Drug intolerance [Unknown]
  - Akathisia [Unknown]
  - Off label use [Unknown]
  - Drug ineffective [Unknown]

NARRATIVE: CASE EVENT DATE: 20241001
